FAERS Safety Report 10565177 (Version 1)
Quarter: 2014Q4

REPORT INFORMATION
  Report Type: Spontaneous
  Country: US (occurrence: None)
  Receive Date: 20141104
  Receipt Date: 20141104
  Transmission Date: 20150529
  Serious: Yes (Life-Threatening, Hospitalization, Disabling, Other)
  Sender: FDA-Public Use
  Company Number: None

PATIENT
  Age: 51 Year
  Sex: Male
  Weight: 80.5 kg

DRUGS (4)
  1. FLEXERIL [Suspect]
     Active Substance: CYCLOBENZAPRINE HYDROCHLORIDE
     Indication: PAIN
     Dosage: 1 TAB EACH DAY BY MOUTH
     Route: 048
     Dates: start: 199505, end: 19960719
  2. FELDENE [Concomitant]
     Active Substance: PIROXICAM
  3. FLEXERIL [Suspect]
     Active Substance: CYCLOBENZAPRINE HYDROCHLORIDE
     Indication: MUSCLE SPASMS
     Dosage: 1 TAB EACH DAY BY MOUTH
     Route: 048
     Dates: start: 199505, end: 19960719
  4. ZOLOFT [Suspect]
     Active Substance: SERTRALINE HYDROCHLORIDE
     Indication: MAJOR DEPRESSION
     Dosage: 1 TABLET EACH DAY BY MOUTH?
     Route: 048
     Dates: start: 19960717, end: 19960719

REACTIONS (18)
  - Headache [None]
  - Hypoaesthesia [None]
  - Dizziness [None]
  - Confusional state [None]
  - Hypertension [None]
  - Drug interaction [None]
  - Asthenia [None]
  - Visual impairment [None]
  - Serotonin syndrome [None]
  - Pain [None]
  - Vision blurred [None]
  - Gait disturbance [None]
  - Balance disorder [None]
  - Speech disorder [None]
  - Cognitive disorder [None]
  - Dementia [None]
  - Lacunar infarction [None]
  - Cerebrovascular accident [None]

NARRATIVE: CASE EVENT DATE: 20140314
